FAERS Safety Report 7488369-5 (Version None)
Quarter: 2011Q2

REPORT INFORMATION
  Report Type: 
  Country: None (occurrence: None)
  Receive Date: 20110518
  Receipt Date: 20110505
  Transmission Date: 20111010
  Serious: Yes (Other)
  Sender: FDA-Public Use
  Company Number: US-JNJFOC-20110504840

PATIENT
  Sex: Female
  Weight: 63.96 kg

DRUGS (5)
  1. CYMBALTA [Concomitant]
     Indication: PAIN
     Route: 048
  2. XANAX [Concomitant]
     Indication: ANXIETY
     Dosage: 3 TO 4 TIMES DAILY
     Route: 048
  3. CYMBALTA [Concomitant]
     Indication: ANXIETY
     Route: 048
  4. FENTANYL-100 [Suspect]
     Indication: BACK PAIN
     Route: 062
     Dates: start: 20100101, end: 20110401
  5. FENTANYL-100 [Suspect]
     Indication: BACK PAIN
     Route: 062
     Dates: start: 20110401

REACTIONS (8)
  - GASTRIC INFECTION [None]
  - ABNORMAL LOSS OF WEIGHT [None]
  - FEEDING DISORDER [None]
  - GASTRIC DISORDER [None]
  - CONVULSION [None]
  - DIVERTICULITIS [None]
  - ANXIETY [None]
  - DIVERTICULUM [None]
